FAERS Safety Report 13988977 (Version 2)
Quarter: 2017Q3

REPORT INFORMATION
  Report Type: Report from Study
  Country: BR (occurrence: BR)
  Receive Date: 20170919
  Receipt Date: 20170926
  Transmission Date: 20171128
  Serious: Yes (Death, Hospitalization)
  Sender: FDA-Public Use
  Company Number: BR-HORIZON-PRO-0060-2017

PATIENT
  Age: 12 Year
  Sex: Male

DRUGS (1)
  1. PROCYSBI DELAYED-RELEASE [Suspect]
     Active Substance: CYSTEAMINE BITARTRATE
     Indication: CYSTINOSIS
     Dosage: 5 CAPSULES OF 75 MG EVERY 12 HOURS
     Dates: start: 201705

REACTIONS (4)
  - Pyrexia [Unknown]
  - Multiple organ dysfunction syndrome [Fatal]
  - Renal neoplasm [Unknown]
  - Pain in extremity [Unknown]

NARRATIVE: CASE EVENT DATE: 20170824
